FAERS Safety Report 12959703 (Version 1)
Quarter: 2016Q4

REPORT INFORMATION
  Report Type: Spontaneous
  Country: US (occurrence: US)
  Receive Date: 20161121
  Receipt Date: 20161121
  Transmission Date: 20170207
  Serious: No
  Sender: FDA-Public Use
  Company Number: US-JNJFOC-20161007008

PATIENT
  Age: 82 Year
  Sex: Female

DRUGS (1)
  1. CHILDRENS TYLENOL [Suspect]
     Active Substance: ACETAMINOPHEN
     Indication: ABDOMINAL PAIN UPPER
     Dosage: 3 TEASPOONS,AS NEEDED.
     Route: 048

REACTIONS (3)
  - Intentional product use issue [Unknown]
  - Drug administered to patient of inappropriate age [Unknown]
  - Intentional product misuse [Unknown]
